FAERS Safety Report 10110442 (Version 2)
Quarter: 2015Q1

REPORT INFORMATION
  Report Type: Other
  Country: US (occurrence: US)
  Receive Date: 20140425
  Receipt Date: 20150105
  Transmission Date: 20150720
  Serious: Yes (Hospitalization, Other)
  Sender: FDA-Public Use
  Company Number: US-GSKPPD-2014GSK010054

PATIENT
  Age: 64 Year
  Sex: Female

DRUGS (6)
  1. MAXZIDE [Concomitant]
     Active Substance: HYDROCHLOROTHIAZIDE\TRIAMTERENE
  2. ENALAPRIL [Concomitant]
     Active Substance: ENALAPRIL
  3. TORSEMIDE. [Concomitant]
     Active Substance: TORSEMIDE
  4. LIPITOR [Concomitant]
     Active Substance: ATORVASTATIN CALCIUM
  5. FUROSEMIDE. [Concomitant]
     Active Substance: FUROSEMIDE
  6. AVANDIA [Suspect]
     Active Substance: ROSIGLITAZONE MALEATE
     Indication: DIABETES MELLITUS
     Dosage: DATES OF AVANDIA USE COULD NOT BE CONFIRMED IN RECORDS REVIEWED.
     Route: 048

REACTIONS (3)
  - Cardiac failure congestive [Recovered/Resolved]
  - Cerebrovascular accident [Unknown]
  - Hypertension [Recovered/Resolved]

NARRATIVE: CASE EVENT DATE: 20050801
